FAERS Safety Report 4723369-7 (Version None)
Quarter: 2005Q3

REPORT INFORMATION
  Report Type: 
  Country: None (occurrence: None)
  Receive Date: 20050719
  Receipt Date: 20050404
  Transmission Date: 20060218
  Serious: Yes (Hospitalization)
  Sender: FDA-Public Use
  Company Number: 2005BI007106

PATIENT
  Age: 56 Year
  Sex: Female
  Weight: 70.3075 kg

DRUGS (5)
  1. AVONEX [Suspect]
     Indication: MULTIPLE SCLEROSIS
     Dosage: 30 UG; QW; IM
     Route: 030
     Dates: start: 20041111
  2. NORTRIPTYLINE HCL [Concomitant]
  3. OXYBUTYNIN [Concomitant]
  4. MELLARIL [Concomitant]
  5. NORTRIPTYLINE HCL [Concomitant]

REACTIONS (2)
  - CYSTITIS [None]
  - MULTIPLE SCLEROSIS RELAPSE [None]
